FAERS Safety Report 13821715 (Version 3)
Quarter: 2019Q2

REPORT INFORMATION
  Report Type: Spontaneous
  Country: US (occurrence: US)
  Receive Date: 20170801
  Receipt Date: 20190625
  Transmission Date: 20190711
  Serious: Yes (Death, Other)
  Sender: FDA-Public Use
  Company Number: US-MALLINCKRODT-T201703129

PATIENT
  Age: 42 Week
  Sex: Male
  Weight: 3 kg

DRUGS (2)
  1. MORPHINE [Suspect]
     Active Substance: MORPHINE
     Indication: SEDATION
  2. MORPHINE [Suspect]
     Active Substance: MORPHINE
     Indication: PAIN
     Dosage: UNK
     Route: 065

REACTIONS (8)
  - Coagulopathy [Unknown]
  - Multiple organ dysfunction syndrome [Fatal]
  - Condition aggravated [Unknown]
  - Hypotension [Unknown]
  - Pulmonary hypertension [Unknown]
  - Neonatal respiratory distress [Unknown]
  - Mast cell degranulation present [Unknown]
  - Product use in unapproved indication [Unknown]
